FAERS Safety Report 8222314-X (Version None)
Quarter: 2012Q1

REPORT INFORMATION
  Report Type: 
  Country: None (occurrence: None)
  Receive Date: 20120320
  Receipt Date: 20120312
  Transmission Date: 20120608
  Serious: Yes (Hospitalization)
  Sender: FDA-Public Use
  Company Number: JP-GLAXOSMITHKLINE-B0789100A

PATIENT
  Sex: Male

DRUGS (3)
  1. LAMICTAL [Suspect]
     Route: 048
  2. LAMICTAL [Suspect]
     Dosage: 100MG PER DAY
     Route: 048
     Dates: end: 20120306
  3. LAMICTAL [Suspect]
     Indication: DEPRESSIVE SYMPTOM
     Route: 048

REACTIONS (2)
  - SKIN DISORDER [None]
  - INSOMNIA [None]
